FAERS Safety Report 8742295 (Version 2)
Quarter: 2014Q2

REPORT INFORMATION
  Report Type: Report from Study
  Country: FR (occurrence: FR)
  Receive Date: 20120824
  Receipt Date: 20140407
  Transmission Date: 20141212
  Serious: Yes (Hospitalization)
  Sender: FDA-Public Use
  Company Number: FR-CELGENEUS-056-21880-12080067

PATIENT
  Age: 62 Year
  Sex: Male

DRUGS (22)
  1. REVLIMID [Suspect]
     Indication: PLASMA CELL MYELOMA
     Dosage: 25 MILLIGRAM
     Route: 048
     Dates: start: 20111201, end: 20120724
  2. REVLIMID [Suspect]
     Dosage: 25 MILLIGRAM
     Route: 048
     Dates: start: 20120808
  3. BORTEZOMIB [Suspect]
     Indication: PLASMA CELL MYELOMA
     Route: 065
     Dates: start: 20111201, end: 20120713
  4. DEXAMETHASONE [Suspect]
     Indication: PLASMA CELL MYELOMA
     Dosage: 20 MILLIGRAM
     Route: 065
     Dates: start: 20111201
  5. TERCIAN [Concomitant]
     Indication: INSOMNIA
     Route: 065
  6. TERCIAN [Concomitant]
     Route: 065
  7. TERCIAN [Concomitant]
     Route: 065
  8. BACTRIM FORTE [Concomitant]
     Indication: PROPHYLAXIS
     Route: 048
     Dates: start: 20111201
  9. ZELITREX [Concomitant]
     Indication: PROPHYLAXIS
     Route: 048
     Dates: start: 20111201
  10. ORACILLINE [Concomitant]
     Indication: PROPHYLAXIS
     Route: 048
     Dates: start: 20111201
  11. LEDERFOLINE [Concomitant]
     Indication: PROPHYLAXIS
     Route: 048
     Dates: start: 20111201
  12. RIVOTRIL [Concomitant]
     Indication: NEUROPATHY PERIPHERAL
     Dosage: 3 DROPS
     Route: 048
     Dates: start: 201202
  13. RIVOTRIL [Concomitant]
     Route: 048
  14. DUROGESIC [Concomitant]
     Indication: NEUROPATHY PERIPHERAL
     Route: 048
     Dates: start: 20120424
  15. ZOMETA [Concomitant]
     Indication: PROPHYLAXIS
     Route: 041
     Dates: start: 2011
  16. OGAST [Concomitant]
     Indication: HIATUS HERNIA
     Route: 048
  17. EFFERALGAN CODEINE [Concomitant]
     Indication: NEUROPATHY PERIPHERAL
     Route: 065
  18. LAXATIVES [Concomitant]
     Indication: CONSTIPATION
     Route: 065
  19. XATRAL [Concomitant]
     Indication: PRODUCT USED FOR UNKNOWN INDICATION
     Route: 065
  20. LEXOMIL [Concomitant]
     Indication: INSOMNIA
     Route: 065
  21. STILNOX [Concomitant]
     Indication: INSOMNIA
     Route: 065
  22. OXYNORM [Concomitant]
     Indication: NEUROPATHY PERIPHERAL
     Route: 048

REACTIONS (1)
  - Anxiety [Recovered/Resolved]
